FAERS Safety Report 19877302 (Version 3)
Quarter: 2021Q4

REPORT INFORMATION
  Report Type: Spontaneous
  Country: US (occurrence: US)
  Receive Date: 20210923
  Receipt Date: 20211115
  Transmission Date: 20220303
  Serious: Yes (Other)
  Sender: FDA-Public Use
  Company Number: US-PFIZER INC-202101234117

PATIENT
  Age: 65 Year
  Sex: Female

DRUGS (1)
  1. EUCRISA [Suspect]
     Active Substance: CRISABOROLE
     Indication: Dyshidrotic eczema
     Dosage: UNK UNK, 2X/DAY
     Route: 061

REACTIONS (3)
  - Haemorrhage [Unknown]
  - Leprosy [Unknown]
  - Off label use [Unknown]
